FAERS Safety Report 5732801-1 (Version None)
Quarter: 2008Q2

REPORT INFORMATION
  Report Type: 
  Country: None (occurrence: None)
  Receive Date: 20080507
  Receipt Date: 20080507
  Transmission Date: 20081010
  Serious: Yes (Hospitalization)
  Sender: FDA-Public Use
  Company Number: None

PATIENT
  Sex: Female
  Weight: 86.2 kg

DRUGS (5)
  1. DOXIL [Suspect]
     Indication: BREAST CANCER
     Dosage: 45MG (25% REDUCTION) EVERY 3 WEEKS IV 042
     Dates: end: 20080425
  2. DOCETAXEL [Suspect]
     Indication: BREAST CANCER
     Dosage: 119MG EVERY 3 WEEKS IV 042
     Route: 042
     Dates: end: 20080425
  3. ATIVAN [Concomitant]
  4. ORAL MORPHINE [Concomitant]
  5. XANAX [Concomitant]

REACTIONS (4)
  - FEBRILE NEUTROPENIA [None]
  - NAUSEA [None]
  - SYNCOPE [None]
  - VOMITING [None]
